FAERS Safety Report 14360291 (Version 4)
Quarter: 2018Q2

REPORT INFORMATION
  Report Type: Spontaneous
  Country: US (occurrence: US)
  Receive Date: 20180106
  Receipt Date: 20180507
  Transmission Date: 20180711
  Serious: Yes (Life-Threatening, Hospitalization, Other)
  Sender: FDA-Public Use
  Company Number: US-AUROBINDO-AUR-APL-2018-001013

PATIENT
  Age: 8 Day
  Sex: Female
  Weight: 2.8 kg

DRUGS (11)
  1. EPINEPHRINE. [Concomitant]
     Active Substance: EPINEPHRINE
     Route: 042
  2. VASOPRESSIN. [Concomitant]
     Active Substance: VASOPRESSIN
     Dosage: 0.0006 U/KG ()
  3. MILRINONE [Concomitant]
     Active Substance: MILRINONE
     Route: 042
  4. EPINEPHRINE. [Concomitant]
     Active Substance: EPINEPHRINE
     Indication: JUNCTIONAL ECTOPIC TACHYCARDIA
     Dosage: 1 PER MINUTE
     Route: 042
  5. DEXMEDETOMIDINE INJECTION [Suspect]
     Active Substance: DEXMEDETOMIDINE
     Indication: SEDATION
     Dosage: 0.5 MICROGRAM/KILOGRAM
     Route: 042
  6. DEXMEDETOMIDINE INJECTION [Suspect]
     Active Substance: DEXMEDETOMIDINE
     Dosage: 1 MICROGRAM/KILOGRAM
     Route: 042
  7. VASOPRESSIN. [Concomitant]
     Active Substance: VASOPRESSIN
     Dosage: 0.0003 U/KG ()
  8. VASOPRESSIN. [Concomitant]
     Active Substance: VASOPRESSIN
     Indication: JUNCTIONAL ECTOPIC TACHYCARDIA
     Dosage: 0.0006 U/KG 1 PER MINUTE
  9. AMIODARONE HYDROCHLORIDE. [Suspect]
     Active Substance: AMIODARONE HYDROCHLORIDE
     Indication: JUNCTIONAL ECTOPIC TACHYCARDIA
     Route: 042
  10. VASOPRESSIN. [Concomitant]
     Active Substance: VASOPRESSIN
     Dosage: 0.0003 U/KG ()
  11. MILRINONE [Concomitant]
     Active Substance: MILRINONE
     Indication: JUNCTIONAL ECTOPIC TACHYCARDIA
     Dosage: UNKNOWN
     Route: 042

REACTIONS (2)
  - Cardiac arrest neonatal [Unknown]
  - Hypotension [Unknown]
